FAERS Safety Report 10885809 (Version 1)
Quarter: 2015Q1

REPORT INFORMATION
  Report Type: Spontaneous
  Country: FR (occurrence: None)
  Receive Date: 20150302
  Receipt Date: 20150302
  Transmission Date: 20150721
  Serious: Yes (Other)
  Sender: FDA-Public Use
  Company Number: SP09072

PATIENT
  Age: 58 Year
  Sex: Male

DRUGS (6)
  1. LANTUS [Concomitant]
     Active Substance: INSULIN GLARGINE
  2. TADENAN [Concomitant]
     Active Substance: PYGEUM
  3. PROPRANOLOL [Concomitant]
     Active Substance: PROPRANOLOL\PROPRANOLOL HYDROCHLORIDE
  4. PRAVASTATIN [Concomitant]
     Active Substance: PRAVASTATIN\PRAVASTATIN SODIUM
  5. INIPOMP [Concomitant]
     Active Substance: PANTOPRAZOLE SODIUM
  6. XIFAXAN [Suspect]
     Active Substance: RIFAXIMIN
     Indication: HEPATIC ENCEPHALOPATHY
     Route: 048
     Dates: start: 20141204

REACTIONS (3)
  - Confusional state [None]
  - Diarrhoea [None]
  - Faecal incontinence [None]

NARRATIVE: CASE EVENT DATE: 20141227
